FAERS Safety Report 15698264 (Version 1)
Quarter: 2018Q4

REPORT INFORMATION
  Report Type: Spontaneous
  Country: CA (occurrence: CA)
  Receive Date: 20181207
  Receipt Date: 20181207
  Transmission Date: 20190205
  Serious: Yes (Other)
  Sender: FDA-Public Use
  Company Number: CA-CELLTRION INC.-2018CA024137

PATIENT

DRUGS (5)
  1. IRON SUPPLEMENT WITH VIT C + HERBS [Concomitant]
     Active Substance: IRON\VITAMINS
     Dosage: UNK
  2. INFLECTRA [Suspect]
     Active Substance: INFLIXIMAB-DYYB
     Dosage: 300 MG/ Q 0,2,6 WEEKS,THEN EVERY 8 WEEKS;
     Route: 042
     Dates: start: 20181123
  3. INFLECTRA [Suspect]
     Active Substance: INFLIXIMAB-DYYB
     Dosage: 300 MG/ Q 0,2,6 WEEKS,THEN EVERY 8 WEEKS;
     Route: 042
     Dates: start: 20181109
  4. INFLECTRA [Suspect]
     Active Substance: INFLIXIMAB-DYYB
     Indication: CROHN^S DISEASE
     Dosage: 300 MG/ Q 0,2,6 WEEKS,THEN EVERY 8 WEEKS;
     Route: 042
  5. METHOTREXATE. [Concomitant]
     Active Substance: METHOTREXATE
     Dosage: UNK

REACTIONS (6)
  - Blood pressure fluctuation [Unknown]
  - Blood pressure fluctuation [Unknown]
  - Syncope [Unknown]
  - Nasopharyngitis [Recovering/Resolving]
  - Heart rate irregular [Unknown]
  - Product use issue [Unknown]

NARRATIVE: CASE EVENT DATE: 201811
